FAERS Safety Report 7749694-3 (Version None)
Quarter: 2011Q3

REPORT INFORMATION
  Report Type: 
  Country: None (occurrence: None)
  Receive Date: 20110914
  Receipt Date: 20110906
  Transmission Date: 20111222
  Serious: Yes (Death)
  Sender: FDA-Public Use
  Company Number: JP-ROCHE-767821

PATIENT
  Sex: Male
  Weight: 50 kg

DRUGS (12)
  1. LENDORMIN [Concomitant]
     Dosage: DOSAGE IS UNCERTAIN.
     Route: 048
     Dates: end: 20110301
  2. ENTERONON-R [Concomitant]
     Dosage: DOSAGE IS UNCERTAIN.
     Route: 048
     Dates: end: 20110301
  3. GRANISETRON [Concomitant]
     Dosage: DOSAGE IS UNCERTAIN.
     Route: 041
     Dates: start: 20110127, end: 20110217
  4. IRINOTECAN HCL [Suspect]
     Indication: RECTAL CANCER METASTATIC
     Dosage: FORM: INJECTION.
     Route: 041
     Dates: start: 20110127, end: 20110217
  5. EFUDEX [Concomitant]
     Dosage: DOSAGE IS UNCERTAIN.
     Route: 041
     Dates: start: 20110127, end: 20110217
  6. LOXONIN [Concomitant]
     Dosage: DOSAGE IS UNCERTAIN.
     Route: 048
     Dates: end: 20110301
  7. EFUDEX [Concomitant]
     Dosage: FORM: INJECTION. DOSAGE IS UNCERTAIN.
     Route: 041
     Dates: start: 20110127, end: 20110201
  8. AVASTIN [Suspect]
     Indication: RECTAL CANCER METASTATIC
     Dosage: FORM: INJECTION.
     Route: 041
     Dates: start: 20110127, end: 20110217
  9. PYDOXAL [Concomitant]
     Dosage: DOSAGE IS UNCERTAIN.
     Route: 065
     Dates: end: 20110301
  10. DEXAMETHASONE SODIUM PHOSPHATE [Concomitant]
     Dosage: DOSAGE IS UNCERTAIN.
     Route: 041
     Dates: start: 20110127, end: 20110217
  11. LEUCOVORIN CALCIUM [Concomitant]
     Dosage: NAME: LEVOFOLINATE CALCIUM, DOSAGE IS UNCERTAIN.
     Route: 041
     Dates: start: 20110127, end: 20110217
  12. RABEPRAZOLE SODIUM [Concomitant]
     Dosage: DOSAGE IS UNCERTAIN.
     Route: 048
     Dates: end: 20110301

REACTIONS (5)
  - HYPERHIDROSIS [None]
  - MALAISE [None]
  - THROMBOTIC THROMBOCYTOPENIC PURPURA [None]
  - BLOOD PRESSURE INCREASED [None]
  - DIARRHOEA [None]
